FAERS Safety Report 12406701 (Version 4)
Quarter: 2017Q1

REPORT INFORMATION
  Report Type: Spontaneous
  Country: FR (occurrence: FR)
  Receive Date: 20160526
  Receipt Date: 20170222
  Transmission Date: 20170428
  Serious: Yes (Death, Congenital Anomaly)
  Sender: FDA-Public Use
  Company Number: FR-ABBVIE-16P-056-1637130-00

PATIENT
  Age: 0 Day
  Sex: Male

DRUGS (1)
  1. DEPAKOTE [Suspect]
     Active Substance: DIVALPROEX SODIUM
     Indication: MATERNAL EXPOSURE TIMING UNSPECIFIED
     Route: 064

REACTIONS (19)
  - Premature baby [Fatal]
  - Microcephaly [Fatal]
  - Acinetobacter infection [Fatal]
  - Cerebral atrophy [Fatal]
  - Pneumothorax [Fatal]
  - Parainfluenzae virus infection [Fatal]
  - Cyanosis [Fatal]
  - Bronchopulmonary dysplasia [Fatal]
  - Spina bifida [Fatal]
  - Arnold-Chiari malformation [Fatal]
  - Pneumomediastinum [Fatal]
  - Foetal exposure during pregnancy [Unknown]
  - Intraventricular haemorrhage [Fatal]
  - Dilatation ventricular [Fatal]
  - Respiratory arrest [Fatal]
  - Lung disorder [Fatal]
  - Neonatal respiratory distress syndrome [Fatal]
  - Cerebral ventricle dilatation [Fatal]
  - Foetal growth restriction [Fatal]

NARRATIVE: CASE EVENT DATE: 2014
